FAERS Safety Report 11786924 (Version 1)
Quarter: 2015Q4

REPORT INFORMATION
  Report Type: Spontaneous
  Country: US (occurrence: US)
  Receive Date: 20151130
  Receipt Date: 20151130
  Transmission Date: 20160305
  Serious: Yes (Other)
  Sender: FDA-Public Use
  Company Number: US-OTSUKA-2015_015363

PATIENT
  Sex: Male

DRUGS (1)
  1. SAMSCA [Suspect]
     Active Substance: TOLVAPTAN
     Indication: PRODUCT USED FOR UNKNOWN INDICATION
     Dosage: UNK
     Route: 065
     Dates: start: 201511

REACTIONS (3)
  - Bladder obstruction [Recovering/Resolving]
  - Blood pressure decreased [Recovering/Resolving]
  - Cardio-respiratory arrest [Recovering/Resolving]

NARRATIVE: CASE EVENT DATE: 201511
